FAERS Safety Report 9507751 (Version 1)
Quarter: 2013Q1

REPORT INFORMATION
  Report Type: Spontaneous
  Country: US (occurrence: None)
  Receive Date: 20130305
  Receipt Date: 20130305
  Transmission Date: 20140127
  Serious: Yes (Other)
  Sender: FDA-Public Use
  Company Number: 163-21880-12051209

PATIENT
  Age: 66 Year
  Sex: Male

DRUGS (1)
  1. REVLIMID (LENALIDOMIDE) (CAPSULES) [Suspect]
     Indication: PLASMA CELL MYELOMA
     Dosage: 21 IN 21 D
     Route: 048
     Dates: start: 20120324

REACTIONS (7)
  - Dry mouth [None]
  - Oedema peripheral [None]
  - Ageusia [None]
  - Decreased appetite [None]
  - Diarrhoea [None]
  - Vomiting [None]
  - Constipation [None]
